FAERS Safety Report 11723256 (Version 1)
Quarter: 2015Q4

REPORT INFORMATION
  Report Type: Spontaneous
  Country: JP (occurrence: JP)
  Receive Date: 20151111
  Receipt Date: 20151111
  Transmission Date: 20160304
  Serious: Yes (Other)
  Sender: FDA-Public Use
  Company Number: JP-GLAXOSMITHKLINE-JP2015JPN159525

PATIENT
  Age: 53 Year
  Sex: Male
  Weight: 57 kg

DRUGS (22)
  1. OXINORM (JAPAN) [Concomitant]
     Indication: CANCER PAIN
     Dosage: 2.5 MG, PRN
     Dates: start: 20140924
  2. PAVINAL (JAPAN) [Concomitant]
     Indication: PREMEDICATION
     Dosage: 1 ML, QD
     Dates: start: 20140929, end: 20140929
  3. UNKNOWN DRUG [Concomitant]
     Active Substance: UNSPECIFIED INGREDIENT
     Dosage: UNK
     Dates: start: 20140912, end: 20140912
  4. COBALOKININ [Concomitant]
     Active Substance: LOXOPROFEN SODIUM
     Indication: HERPES ZOSTER
     Dosage: 60 MG, PRN
     Dates: start: 20140714, end: 20140917
  5. MUCOSTA [Concomitant]
     Active Substance: REBAMIPIDE
     Indication: GASTRIC MUCOSAL LESION
     Dosage: 100 MG, TID
     Dates: start: 20140924
  6. RINDERON V [Concomitant]
     Active Substance: BETAMETHASONE VALERATE
     Indication: ECZEMA
     Dosage: UNK
     Dates: start: 20140930
  7. EMEND [Concomitant]
     Active Substance: APREPITANT
     Indication: PROPHYLAXIS OF NAUSEA AND VOMITING
     Dosage: 125 MG, QD
     Dates: start: 20141015, end: 20141015
  8. FRUCTLACT [Concomitant]
     Dosage: 500 ML, QD
     Dates: start: 20141016, end: 20141017
  9. ISOTONIC SODIUM CHLORIDE SOLUTION [Concomitant]
     Active Substance: SODIUM CHLORIDE
     Dosage: 1950 ML, QD
     Dates: start: 20141015, end: 20141015
  10. MANNITOL-S [Concomitant]
     Indication: NEPHROPROTECTIVE THERAPY
     Dosage: 300 ML, BID
     Dates: start: 20141015, end: 20141015
  11. FRUCTLACT [Concomitant]
     Indication: ELECTROLYTE SUBSTITUTION THERAPY
     Dosage: 500 ML, BID
     Dates: start: 20141015, end: 20141015
  12. VALTREX [Suspect]
     Active Substance: VALACYCLOVIR HYDROCHLORIDE
     Indication: HERPES ZOSTER
     Dosage: UNK
     Route: 048
     Dates: start: 20140711
  13. PANVITAN [Concomitant]
     Indication: CHEMOTHERAPY
     Dosage: 1 G, QD
     Dates: start: 20141008
  14. LOXONIN [Concomitant]
     Active Substance: LOXOPROFEN SODIUM
     Indication: CANCER PAIN
     Dosage: 60 MG, TID
     Dates: start: 20140924
  15. EMEND [Concomitant]
     Active Substance: APREPITANT
     Dosage: 80 MG, QD
     Dates: start: 20141016, end: 20141017
  16. ADALAT CC [Concomitant]
     Active Substance: NIFEDIPINE
     Indication: HYPERTENSION
     Dosage: 20 MG, QD
  17. WHITE PETROLATUM [Concomitant]
     Active Substance: PETROLATUM
     Indication: HERPES ZOSTER
     Dosage: UNK
     Dates: start: 20140714, end: 20140720
  18. ISOTONIC SODIUM CHLORIDE SOLUTION [Concomitant]
     Active Substance: SODIUM CHLORIDE
     Dosage: 100 ML, QD
     Dates: start: 20141016, end: 20141017
  19. VITAMIN B12 [Concomitant]
     Active Substance: CYANOCOBALAMIN
     Indication: PREMEDICATION
     Dosage: 1000 ?G, QD
     Dates: start: 20141007, end: 20141007
  20. FUROSEMIDE. [Concomitant]
     Active Substance: FUROSEMIDE
     Indication: DIURETIC THERAPY
     Dosage: 20 MG, QD
     Dates: start: 20141015, end: 20141015
  21. MANNITOL-S [Concomitant]
     Dosage: 300 ML, QD
     Dates: start: 20141016, end: 20141017
  22. ALOXI [Concomitant]
     Active Substance: PALONOSETRON HYDROCHLORIDE
     Indication: PROPHYLAXIS OF NAUSEA AND VOMITING
     Dosage: 0.75 MG, QD
     Dates: start: 20141015, end: 20141015

REACTIONS (7)
  - Dermatitis contact [Recovered/Resolved]
  - Diarrhoea [Unknown]
  - Constipation [Unknown]
  - Insomnia [Unknown]
  - Duodenal ulcer [Unknown]
  - Lung neoplasm malignant [Not Recovered/Not Resolved]
  - Hiccups [Unknown]

NARRATIVE: CASE EVENT DATE: 20140728
